FAERS Safety Report 8134349-6 (Version None)
Quarter: 2012Q1

REPORT INFORMATION
  Report Type: 
  Country: None (occurrence: None)
  Receive Date: 20120209
  Receipt Date: 20120127
  Transmission Date: 20120608
  Serious: Yes (Hospitalization)
  Sender: FDA-Public Use
  Company Number: IMP_05732_2012

PATIENT
  Age: 80 Year
  Sex: Female

DRUGS (1)
  1. METFORMIN HCL [Suspect]
     Indication: DIABETES MELLITUS
     Dosage: DF

REACTIONS (13)
  - COLITIS ISCHAEMIC [None]
  - LACTIC ACIDOSIS [None]
  - SEPTIC SHOCK [None]
  - DYSPNOEA [None]
  - HYPERKALAEMIA [None]
  - CONTINUOUS HAEMODIAFILTRATION [None]
  - TACHYPNOEA [None]
  - HYPOTENSION [None]
  - PYELONEPHRITIS [None]
  - ALTERED STATE OF CONSCIOUSNESS [None]
  - LOBAR PNEUMONIA [None]
  - RENAL FAILURE [None]
  - RECTAL HAEMORRHAGE [None]
